FAERS Safety Report 13778481 (Version 1)
Quarter: 2017Q3

REPORT INFORMATION
  Report Type: Spontaneous
  Country: US (occurrence: US)
  Receive Date: 20170721
  Receipt Date: 20170721
  Transmission Date: 20171127
  Serious: No
  Sender: FDA-Public Use
  Company Number: US-CIPLA LTD.-2017US05180

PATIENT

DRUGS (5)
  1. SOTALOL. [Concomitant]
     Active Substance: SOTALOL
     Dosage: 80 MG, ONE TABLET IN THE MORNING AND HALF TABLET AT NIGHT
     Route: 065
  2. WARFARIN [Suspect]
     Active Substance: WARFARIN
     Indication: ANTICOAGULANT THERAPY
     Dosage: 2 MG, ALL DAYS EXCEPT ONE AND HALF TABLET ON WEDNESDAYS
     Route: 048
     Dates: start: 201609
  3. METHIMAZOLE. [Concomitant]
     Active Substance: METHIMAZOLE
     Dosage: 5 MG, QD
     Route: 065
  4. PRAVASTATIN. [Concomitant]
     Active Substance: PRAVASTATIN
     Dosage: 80 MG, QD, HALF A TABLET
     Route: 065
  5. LOSARTAN. [Concomitant]
     Active Substance: LOSARTAN
     Dosage: 50 MG, BID
     Route: 065

REACTIONS (1)
  - Alopecia [Not Recovered/Not Resolved]

NARRATIVE: CASE EVENT DATE: 201611
